FAERS Safety Report 6580376-X (Version None)
Quarter: 2010Q1

REPORT INFORMATION
  Report Type: 
  Country: None (occurrence: None)
  Receive Date: 20100212
  Receipt Date: 20100202
  Transmission Date: 20100710
  Serious: Yes (Hospitalization)
  Sender: FDA-Public Use
  Company Number: PHHO2009DE16292

PATIENT
  Sex: Male
  Weight: 56 kg

DRUGS (4)
  1. SANDIMMUNE [Suspect]
     Dosage: 75 MG, BID
  2. MYFORTIC [Suspect]
     Dosage: 360 MG, QID
  3. NO TREATMENT RECEIVED NOMED [Suspect]
     Indication: RENAL TRANSPLANT
     Dosage: NO TREATMENT
  4. URBASON [Concomitant]
     Indication: RENAL TRANSPLANT
     Dosage: 12 MG, UNK

REACTIONS (1)
  - LYMPHOCELE [None]
